FAERS Safety Report 25206581 (Version 1)
Quarter: 2025Q2

REPORT INFORMATION
  Report Type: Spontaneous
  Country: US (occurrence: US)
  Receive Date: 20250417
  Receipt Date: 20250417
  Transmission Date: 20250716
  Serious: Yes (Disabling)
  Sender: ALEXION PHARMACEUTICALS
  Company Number: US-AstraZeneca-CH-00847129AP

PATIENT

DRUGS (2)
  1. BREZTRI [Suspect]
     Active Substance: BUDESONIDE\FORMOTEROL\GLYCOPYRROLATE
     Indication: Chronic obstructive pulmonary disease
     Route: 065
  2. BREZTRI [Suspect]
     Active Substance: BUDESONIDE\FORMOTEROL\GLYCOPYRROLATE
     Indication: Pulmonary fibrosis

REACTIONS (5)
  - Wheezing [Unknown]
  - Device malfunction [Unknown]
  - Product dose omission issue [Unknown]
  - Illness [Unknown]
  - Dyspnoea [Unknown]
